FAERS Safety Report 15981216 (Version 1)
Quarter: 2019Q1

REPORT INFORMATION
  Report Type: Spontaneous
  Country: GB (occurrence: GB)
  Receive Date: 20190218
  Receipt Date: 20190218
  Transmission Date: 20190418
  Serious: Yes (Disabling)
  Sender: FDA-Public Use
  Company Number: None

PATIENT
  Age: 43 Year
  Sex: Female
  Weight: 69.3 kg

DRUGS (1)
  1. OMEPRAZOLE. [Suspect]
     Active Substance: OMEPRAZOLE
     Indication: GASTROOESOPHAGEAL REFLUX DISEASE
     Route: 048
     Dates: start: 20181218, end: 20181222

REACTIONS (15)
  - Depressed level of consciousness [None]
  - Bradyphrenia [None]
  - Malaise [None]
  - Nausea [None]
  - Diarrhoea [None]
  - Dyspepsia [None]
  - Condition aggravated [None]
  - Abdominal pain upper [None]
  - Asthenia [None]
  - Fatigue [None]
  - Gastrooesophageal reflux disease [None]
  - Head discomfort [None]
  - Pyrexia [None]
  - Clostridium colitis [None]
  - Product complaint [None]

NARRATIVE: CASE EVENT DATE: 20181222
